FAERS Safety Report 6312784-6 (Version None)
Quarter: 2009Q3

REPORT INFORMATION
  Report Type: 
  Country: None (occurrence: None)
  Receive Date: 20090818
  Receipt Date: 20090803
  Transmission Date: 20100115
  Serious: Yes (Other)
  Sender: FDA-Public Use
  Company Number: FR-MYLANLABS-2009S1013630

PATIENT
  Age: 56 Year
  Sex: Female

DRUGS (1)
  1. DEXTROPROPOXYPHENE PARACETAMOL MERCK [Suspect]
     Indication: BUNION OPERATION
     Route: 048
     Dates: start: 20090601

REACTIONS (2)
  - BLOOD ALKALINE PHOSPHATASE INCREASED [None]
  - CYTOLYTIC HEPATITIS [None]
